FAERS Safety Report 25520693 (Version 2)
Quarter: 2025Q3

REPORT INFORMATION
  Report Type: Spontaneous
  Country: US (occurrence: US)
  Receive Date: 20250705
  Receipt Date: 20250810
  Transmission Date: 20251021
  Serious: Yes (Other)
  Sender: ALEXION PHARMACEUTICALS
  Company Number: US-AstraZeneca-CH-00901470A

PATIENT
  Age: 73 Year
  Sex: Female

DRUGS (1)
  1. FARXIGA [Suspect]
     Active Substance: DAPAGLIFLOZIN PROPANEDIOL
     Route: 065

REACTIONS (9)
  - Peripheral coldness [Unknown]
  - Blood creatine increased [Unknown]
  - Macular degeneration [Unknown]
  - Asthenia [Unknown]
  - Renal disorder [Unknown]
  - Crohn^s disease [Unknown]
  - Glomerular filtration rate decreased [Unknown]
  - Red blood cell count decreased [Unknown]
  - Autoimmune disorder [Unknown]
